FAERS Safety Report 17564778 (Version 1)
Quarter: 2020Q1

REPORT INFORMATION
  Report Type: Report from Study
  Country: ES (occurrence: ES)
  Receive Date: 20200320
  Receipt Date: 20200320
  Transmission Date: 20200409
  Serious: Yes (Other)
  Sender: FDA-Public Use
  Company Number: ES-ACCORD-176492

PATIENT
  Age: 91 Year
  Sex: Male

DRUGS (10)
  1. RELVAR ELLIPTA [Concomitant]
     Active Substance: FLUTICASONE FUROATE\VILANTEROL TRIFENATATE
     Dosage: 92 MG /22 MG INHALATION POWDER (SINGLE DOSE, 30 DOSES
  2. ELECOR [Concomitant]
     Active Substance: EPLERENONE
     Dosage: 25 MG
  3. DIGOXIN. [Concomitant]
     Active Substance: DIGOXIN
     Dosage: 0.25 MG 50 TABLETS
  4. PAROXETINE. [Concomitant]
     Active Substance: PAROXETINE
     Dosage: 20 MG
  5. ACETYLSALICYLIC ACID [Concomitant]
     Active Substance: ASPIRIN
     Dosage: 100 MG,EFG
  6. ESOMEPRAZOLE. [Concomitant]
     Active Substance: ESOMEPRAZOLE MAGNESIUM
     Dosage: 20 MG
  7. BISOPROLOL [Concomitant]
     Active Substance: BISOPROLOL
     Dosage: 2.5 MG
  8. ALDOCUMAR [Concomitant]
     Active Substance: WARFARIN SODIUM
     Dosage: 3 MG
  9. FUROSEMIDE. [Suspect]
     Active Substance: FUROSEMIDE
     Indication: CARDIAC FAILURE
     Dosage: 40 MG,1.5-1-1
     Route: 048
     Dates: start: 20111212
  10. DISTRANEURINE [Concomitant]
     Active Substance: CLOMETHIAZOLE

REACTIONS (2)
  - Hypokalaemia [Recovered/Resolved]
  - Renal failure [Recovered/Resolved]

NARRATIVE: CASE EVENT DATE: 2019
